FAERS Safety Report 8844460 (Version 2)
Quarter: 2012Q4

REPORT INFORMATION
  Report Type: 
  Country: JP (occurrence: JP)
  Receive Date: 20121017
  Receipt Date: 20121022
  Transmission Date: 20130627
  Serious: Yes (Other)
  Sender: FDA-Public Use
  Company Number: PHHY2012JP090626

PATIENT
  Age: 72 Year
  Sex: Female

DRUGS (3)
  1. EVEROLIMUS [Suspect]
     Indication: RENAL CELL CARCINOMA
     Dosage: 5 mg, daily
     Route: 048
  2. EVEROLIMUS [Suspect]
     Dosage: 10 mg, daily
     Route: 048
  3. ZOLEDRONIC ACID [Suspect]
     Indication: METASTASES TO BONE

REACTIONS (3)
  - Renal impairment [Unknown]
  - Neoplasm progression [Unknown]
  - Malignant neoplasm progression [Unknown]
